FAERS Safety Report 16125048 (Version 10)
Quarter: 2021Q1

REPORT INFORMATION
  Report Type: Report from Study
  Country: JP (occurrence: JP)
  Receive Date: 20190327
  Receipt Date: 20210304
  Transmission Date: 20210419
  Serious: Yes (Death, Hospitalization)
  Sender: FDA-Public Use
  Company Number: JP-PFIZER INC-2019119009

PATIENT
  Age: 81 Year
  Sex: Female
  Weight: 60 kg

DRUGS (20)
  1. PREDONINE [Concomitant]
     Active Substance: PREDNISOLONE
     Dosage: 4 MG, DAILY
     Dates: start: 20170814, end: 20171224
  2. PREDONINE [Concomitant]
     Active Substance: PREDNISOLONE
     Dosage: 10 MG, DAILY
     Dates: start: 20190102, end: 20190218
  3. URSO [Concomitant]
     Active Substance: URSODIOL
     Dosage: UNK
     Route: 048
  4. FORTEO [Concomitant]
     Active Substance: TERIPARATIDE
     Dosage: UNK
  5. PRALIA [Concomitant]
     Active Substance: DENOSUMAB
     Dosage: UNK
     Dates: start: 20170925
  6. PREDNISOLONE. [Concomitant]
     Active Substance: PREDNISOLONE
     Dosage: 6 MG, 1X/DAY
     Dates: start: 20190305, end: 20190927
  7. XELJANZ [Suspect]
     Active Substance: TOFACITINIB CITRATE
     Dosage: 5 MG, 2X/DAY
     Route: 048
     Dates: start: 20170508, end: 20181029
  8. PREDONINE [Concomitant]
     Active Substance: PREDNISOLONE
     Dosage: 5 MG, DAILY
     Dates: start: 20181112, end: 20181225
  9. PREDONINE [Concomitant]
     Active Substance: PREDNISOLONE
     Dosage: 7.5 MG, DAILY
     Dates: start: 20181226, end: 20190101
  10. PREDNISOLONE. [Concomitant]
     Active Substance: PREDNISOLONE
     Dosage: 8 MG, 1X/DAY
     Dates: start: 20190219, end: 20190222
  11. PREDNISOLONE. [Concomitant]
     Active Substance: PREDNISOLONE
     Dosage: 5 MG, 1X/DAY
     Dates: start: 20190228, end: 20190304
  12. PREDONINE [Concomitant]
     Active Substance: PREDNISOLONE
     Dosage: 7.5 MG, DAILY
     Dates: end: 20170409
  13. PREDONINE [Concomitant]
     Active Substance: PREDNISOLONE
     Dosage: 3 MG, DAILY
     Dates: start: 20171225, end: 20181111
  14. PREDNISOLONE. [Concomitant]
     Active Substance: PREDNISOLONE
     Dosage: 6 MG, 1X/DAY
     Dates: start: 20190223, end: 20190227
  15. PREDONINE [Concomitant]
     Active Substance: PREDNISOLONE
     Dosage: 4 MG, DAILY
     Dates: start: 20170703, end: 20170813
  16. LANSOPRAZOLE. [Concomitant]
     Active Substance: LANSOPRAZOLE
     Dosage: UNK
     Route: 048
  17. XELJANZ [Suspect]
     Active Substance: TOFACITINIB CITRATE
     Indication: RHEUMATOID ARTHRITIS
     Dosage: 5 MG, 1X/DAY
     Route: 048
     Dates: start: 20170327, end: 20170507
  18. XELJANZ [Suspect]
     Active Substance: TOFACITINIB CITRATE
     Dosage: 5 MG, 1X/DAY
     Route: 048
     Dates: start: 20181112, end: 20181225
  19. PREDONINE [Concomitant]
     Active Substance: PREDNISOLONE
     Dosage: 5 MG, DAILY
     Dates: start: 20170410, end: 20170702
  20. DENOTAS [Concomitant]
     Active Substance: CALCIUM CARBONATE\CHOLECALCIFEROL\MAGNESIUM CARBONATE
     Dosage: UNK
     Route: 048
     Dates: start: 20170925

REACTIONS (4)
  - Pancytopenia [Not Recovered/Not Resolved]
  - Gastric cancer [Recovering/Resolving]
  - Blood pressure decreased [Fatal]
  - Aplasia pure red cell [Not Recovered/Not Resolved]

NARRATIVE: CASE EVENT DATE: 20181112
